FAERS Safety Report 25151553 (Version 1)
Quarter: 2025Q2

REPORT INFORMATION
  Report Type: Report from Study
  Country: FR (occurrence: FR)
  Receive Date: 20250402
  Receipt Date: 20250402
  Transmission Date: 20250716
  Serious: Yes (Other)
  Sender: JOHNSON AND JOHNSON
  Company Number: FR-MYLANLABS-2019M1076460

PATIENT

DRUGS (1)
  1. PREZISTA [Suspect]
     Active Substance: DARUNAVIR ETHANOLATE
     Indication: HIV infection
     Route: 065

REACTIONS (2)
  - Pathogen resistance [Unknown]
  - Virologic failure [Unknown]
